FAERS Safety Report 17988691 (Version 4)
Quarter: 2021Q2

REPORT INFORMATION
  Report Type: Spontaneous
  Country: US (occurrence: US)
  Receive Date: 20200707
  Receipt Date: 20210628
  Transmission Date: 20210717
  Serious: Yes (Other)
  Sender: FDA-Public Use
  Company Number: US-GILEAD-2020-0478963

PATIENT
  Age: 48 Year
  Sex: Male
  Weight: 72.56 kg

DRUGS (67)
  1. KALETRA [Concomitant]
     Active Substance: LOPINAVIR\RITONAVIR
  2. STROMECTOL [Concomitant]
     Active Substance: IVERMECTIN
  3. LORAZEPAM. [Concomitant]
     Active Substance: LORAZEPAM
  4. CIPROFLOXACIN. [Concomitant]
     Active Substance: CIPROFLOXACIN
  5. CHANTIX [Concomitant]
     Active Substance: VARENICLINE TARTRATE
  6. ISONIAZID. [Concomitant]
     Active Substance: ISONIAZID
  7. RIFABUTIN. [Concomitant]
     Active Substance: RIFABUTIN
  8. TRUVADA [Suspect]
     Active Substance: EMTRICITABINE\TENOFOVIR DISOPROXIL FUMARATE
     Dosage: UNK
     Route: 048
     Dates: start: 2014, end: 2019
  9. TRUVADA [Suspect]
     Active Substance: EMTRICITABINE\TENOFOVIR DISOPROXIL FUMARATE
     Dosage: UNK
     Route: 048
     Dates: start: 20190620, end: 201907
  10. COMPLERA [Suspect]
     Active Substance: EMTRICITABINE\RILPIVIRINE HYDROCHLORIDE\TENOFOVIR DISOPROXIL FUMARATE
     Dosage: UNK
     Route: 065
     Dates: start: 20120123, end: 20120508
  11. LAMIVUDINE. [Concomitant]
     Active Substance: LAMIVUDINE
  12. TRIAMCINOLONE [Concomitant]
     Active Substance: TRIAMCINOLONE
  13. BACLOFEN. [Concomitant]
     Active Substance: BACLOFEN
  14. HYDROXYZINE [Concomitant]
     Active Substance: HYDROXYZINE HYDROCHLORIDE
  15. COMPLERA [Suspect]
     Active Substance: EMTRICITABINE\RILPIVIRINE HYDROCHLORIDE\TENOFOVIR DISOPROXIL FUMARATE
     Indication: HIV INFECTION
     Dosage: UNK
     Route: 048
     Dates: start: 2010, end: 2012
  16. HYDROCODONE/ACETAMINOPHEN [Concomitant]
     Active Substance: ACETAMINOPHEN\HYDROCODONE
  17. PREZISTA [Concomitant]
     Active Substance: DARUNAVIR ETHANOLATE
  18. ONDANSETRON [Concomitant]
     Active Substance: ONDANSETRON
  19. METRONIDAZOLE. [Concomitant]
     Active Substance: METRONIDAZOLE
  20. MECLIZINE HCL [Concomitant]
     Active Substance: MECLIZINE HYDROCHLORIDE
  21. TRUVADA [Suspect]
     Active Substance: EMTRICITABINE\TENOFOVIR DISOPROXIL FUMARATE
     Indication: HIV INFECTION
     Dosage: UNK
     Route: 065
     Dates: start: 20140107, end: 20140303
  22. ATRIPLA [Suspect]
     Active Substance: EFAVIRENZ\EMTRICITABINE\TENOFOVIR DISOPROXIL FUMARATE
     Indication: HIV INFECTION
     Dosage: UNK
     Route: 048
     Dates: start: 2010, end: 2012
  23. COMPLERA [Suspect]
     Active Substance: EMTRICITABINE\RILPIVIRINE HYDROCHLORIDE\TENOFOVIR DISOPROXIL FUMARATE
     Dosage: UNK
     Route: 048
     Dates: start: 20120123, end: 201204
  24. RANITIDINE. [Concomitant]
     Active Substance: RANITIDINE
  25. ZIAGEN [Concomitant]
     Active Substance: ABACAVIR SULFATE
  26. PANTOPRAZOLE [Concomitant]
     Active Substance: PANTOPRAZOLE
  27. VALACYCLOVIR HCL [Concomitant]
     Active Substance: VALACYCLOVIR HYDROCHLORIDE
  28. CIALIS [Concomitant]
     Active Substance: TADALAFIL
  29. OFLOXACIN. [Concomitant]
     Active Substance: OFLOXACIN
  30. DIAZEPAM. [Concomitant]
     Active Substance: DIAZEPAM
  31. CYCLOBENZAPRINE. [Concomitant]
     Active Substance: CYCLOBENZAPRINE
  32. DULOXETINE. [Concomitant]
     Active Substance: DULOXETINE
  33. PYRAZINAMIDE. [Concomitant]
     Active Substance: PYRAZINAMIDE
  34. NORVIR [Concomitant]
     Active Substance: RITONAVIR
  35. EPZICOM [Concomitant]
     Active Substance: ABACAVIR SULFATE\LAMIVUDINE
  36. ISENTRESS [Concomitant]
     Active Substance: RALTEGRAVIR POTASSIUM
  37. FLUCONAZOLE. [Concomitant]
     Active Substance: FLUCONAZOLE
  38. CHLORDIAZEPOXIDE. [Concomitant]
     Active Substance: CHLORDIAZEPOXIDE
  39. BENZONATATE. [Concomitant]
     Active Substance: BENZONATATE
  40. ETHAMBUTOL [Concomitant]
     Active Substance: ETHAMBUTOL HYDROCHLORIDE
  41. TIVICAY [Concomitant]
     Active Substance: DOLUTEGRAVIR SODIUM
  42. SELZENTRY [Concomitant]
     Active Substance: MARAVIROC
  43. TRAMADOL. [Concomitant]
     Active Substance: TRAMADOL
  44. GABAPENTIN. [Concomitant]
     Active Substance: GABAPENTIN
  45. CEFDINIR. [Concomitant]
     Active Substance: CEFDINIR
  46. TRUVADA [Suspect]
     Active Substance: EMTRICITABINE\TENOFOVIR DISOPROXIL FUMARATE
     Dosage: UNK
     Route: 065
     Dates: start: 20140107, end: 201908
  47. VIREAD [Suspect]
     Active Substance: TENOFOVIR DISOPROXIL FUMARATE
     Indication: HIV INFECTION
     Dosage: UNK
     Route: 048
     Dates: start: 20041014, end: 201009
  48. GENVOYA [Concomitant]
     Active Substance: COBICISTAT\ELVITEGRAVIR\EMTRICITABINE\TENOFOVIR ALAFENAMIDE FUMARATE
  49. CARBOPLATIN. [Concomitant]
     Active Substance: CARBOPLATIN
  50. TYLENOL [Concomitant]
     Active Substance: ACETAMINOPHEN
  51. CLAV [AMOXICILLIN TRIHYDRATE;CLAVULANATE POTASSIUM] [Concomitant]
  52. XANAX [Concomitant]
     Active Substance: ALPRAZOLAM
  53. PREZCOBIX [Concomitant]
     Active Substance: COBICISTAT\DARUNAVIR ETHANOLATE
  54. NAPROXEN. [Concomitant]
     Active Substance: NAPROXEN
  55. CLOTRIMAZOLE. [Concomitant]
     Active Substance: CLOTRIMAZOLE
  56. LEVITRA [Concomitant]
     Active Substance: VARDENAFIL HYDROCHLORIDE
  57. TRIMETHOPRIM SULFAMETHOXAZOLE [Concomitant]
     Active Substance: SULFAMETHOXAZOLE\TRIMETHOPRIM
  58. METAXALONE. [Concomitant]
     Active Substance: METAXALONE
  59. RAPAFLO [Concomitant]
     Active Substance: SILODOSIN
  60. PROAIR HFA [Concomitant]
     Active Substance: ALBUTEROL SULFATE
  61. DOVATO [Concomitant]
     Active Substance: DOLUTEGRAVIR SODIUM\LAMIVUDINE
  62. ATRIPLA [Suspect]
     Active Substance: EFAVIRENZ\EMTRICITABINE\TENOFOVIR DISOPROXIL FUMARATE
     Dosage: UNK
     Route: 048
     Dates: start: 20110304, end: 20120123
  63. DEXAMETHASONE. [Concomitant]
     Active Substance: DEXAMETHASONE
  64. PACLITAXEL. [Concomitant]
     Active Substance: PACLITAXEL
  65. SODIUM BICARBONATE. [Concomitant]
     Active Substance: SODIUM BICARBONATE
  66. PROCTOZONE HC [Concomitant]
     Active Substance: HYDROCORTISONE
  67. ATROPINE. [Concomitant]
     Active Substance: ATROPINE

REACTIONS (10)
  - Acute kidney injury [Not Recovered/Not Resolved]
  - Pain [Unknown]
  - Emotional distress [Unknown]
  - Renal atrophy [Not Recovered/Not Resolved]
  - Multiple fractures [Not Recovered/Not Resolved]
  - Fanconi syndrome acquired [Not Recovered/Not Resolved]
  - Chronic kidney disease [Not Recovered/Not Resolved]
  - Renal failure [Not Recovered/Not Resolved]
  - Nephropathy [Not Recovered/Not Resolved]
  - Rib fracture [Unknown]

NARRATIVE: CASE EVENT DATE: 20120501
